FAERS Safety Report 21114390 (Version 1)
Quarter: 2022Q3

REPORT INFORMATION
  Report Type: Spontaneous
  Country: US (occurrence: None)
  Receive Date: 20220721
  Receipt Date: 20220721
  Transmission Date: 20221027
  Serious: No
  Sender: FDA-Public Use
  Company Number: 2022A248667

PATIENT
  Age: 14978 Day
  Sex: Female
  Weight: 117.9 kg

DRUGS (1)
  1. BYDUREON BCISE [Suspect]
     Active Substance: EXENATIDE
     Indication: Weight abnormal
     Route: 058

REACTIONS (4)
  - Device use issue [Unknown]
  - Incorrect dose administered [Unknown]
  - Product administration error [Unknown]
  - Device leakage [Unknown]

NARRATIVE: CASE EVENT DATE: 20220707
